FAERS Safety Report 21228785 (Version 10)
Quarter: 2022Q4

REPORT INFORMATION
  Report Type: Spontaneous
  Country: US (occurrence: US)
  Receive Date: 20220818
  Receipt Date: 20221011
  Transmission Date: 20230113
  Serious: Yes (Other)
  Sender: FDA-Public Use
  Company Number: US-PFIZER INC-202201060362

PATIENT
  Age: 75 Year
  Sex: Female
  Weight: 96.16 kg

DRUGS (13)
  1. ZYVOX [Suspect]
     Active Substance: LINEZOLID
     Indication: Fungal infection
     Dosage: 600 MG, 2X/DAY (TOOK 12 NOON 12 MIDNIGHT)
     Route: 065
     Dates: start: 20220812, end: 20220822
  2. ELIQUIS [Suspect]
     Active Substance: APIXABAN
     Indication: Anticoagulant therapy
     Dosage: 5 MG, 2X/DAY (1 IN THE MORNING AND 1 IN THE EVENING)
  3. VITAMIN B COMPLEX [Concomitant]
     Active Substance: CYANOCOBALAMIN\DEXPANTHENOL\NIACINAMIDE\PYRIDOXINE HYDROCHLORIDE\RIBOFLAVIN 5^-PHOSPHATE SODIUM\THIA
     Indication: Full blood count decreased
     Dosage: UNK, 1X/DAY (FOR SEVERAL YEARS)
  4. CLONAZEPAM [Concomitant]
     Active Substance: CLONAZEPAM
     Indication: Sleep disorder
     Dosage: UNK, 1X/DAY (AT NIGHT) (FOR SEVERAL YEARS)
  5. CLONAZEPAM [Concomitant]
     Active Substance: CLONAZEPAM
     Indication: Agitation
  6. CLONAZEPAM [Concomitant]
     Active Substance: CLONAZEPAM
     Indication: Nervousness
  7. CLONAZEPAM [Concomitant]
     Active Substance: CLONAZEPAM
     Indication: Anxiety
  8. VITAMIN B3 [Concomitant]
     Active Substance: NIACIN
     Indication: Full blood count decreased
     Dosage: UNK
  9. POTASSIUM [Concomitant]
     Active Substance: POTASSIUM
     Dosage: UNK UNK, 1X/DAY
  10. METFORMIN [Concomitant]
     Active Substance: METFORMIN HYDROCHLORIDE
     Indication: Blood glucose abnormal
     Dosage: 500 MG, 2X/DAY (1 IN MORNING 1 IN EVENING (SEVERAL YEARS))
  11. CARDIAZEM [DILTIAZEM] [Concomitant]
     Indication: Heart rate abnormal
     Dosage: 300 MG (SEVERAL YEARS)
  12. ATORVASTATIN [Concomitant]
     Active Substance: ATORVASTATIN
     Indication: Blood cholesterol abnormal
     Dosage: 20 MG (SEVERAL YEARS)
  13. WIXELA INHUB [Concomitant]
     Active Substance: FLUTICASONE PROPIONATE\SALMETEROL XINAFOATE
     Dosage: 500/50 (UNIT NOT SPECIFIED)
     Dates: start: 20220711

REACTIONS (8)
  - Osteomyelitis acute [Unknown]
  - Diarrhoea [Not Recovered/Not Resolved]
  - Dizziness [Not Recovered/Not Resolved]
  - Feeling jittery [Not Recovered/Not Resolved]
  - Poor quality sleep [Unknown]
  - Rash macular [Unknown]
  - Ulcer [Unknown]
  - Off label use [Unknown]

NARRATIVE: CASE EVENT DATE: 20220101
